FAERS Safety Report 8551530-2 (Version None)
Quarter: 2012Q3

REPORT INFORMATION
  Report Type: 
  Country: None (occurrence: None)
  Receive Date: 20120730
  Receipt Date: 20120716
  Transmission Date: 20120928
  Serious: Yes (Death, Hospitalization, Other)
  Sender: FDA-Public Use
  Company Number: US-ROCHE-1094236

PATIENT

DRUGS (1)
  1. RANIBIZUMAB [Suspect]
     Indication: AGE-RELATED MACULAR DEGENERATION
     Dosage: 0.50 MG RANIBIZUMAB IN 0.05 ML SOLUTION
     Route: 050

REACTIONS (21)
  - NERVOUS SYSTEM DISORDER [None]
  - HAEMORRHAGE [None]
  - CEREBROVASCULAR ACCIDENT [None]
  - MYOCARDIAL INFARCTION [None]
  - HYPERTENSION [None]
  - PSEUDOENDOPHTHALMITIS [None]
  - ANGIOPATHY [None]
  - INFECTION [None]
  - URINARY TRACT INFECTION [None]
  - GASTROINTESTINAL DISORDER [None]
  - VOMITING [None]
  - HERNIA [None]
  - CARDIAC DISORDER [None]
  - NAUSEA [None]
  - VENOUS THROMBOSIS [None]
  - ENDOPHTHALMITIS [None]
  - BENIGN NEOPLASM [None]
  - ARTERIAL THROMBOSIS [None]
  - NEOPLASM MALIGNANT [None]
  - DEATH [None]
  - PNEUMONIA [None]
